FAERS Safety Report 23503950 (Version 2)
Quarter: 2024Q1

REPORT INFORMATION
  Report Type: Spontaneous
  Country: AR (occurrence: AR)
  Receive Date: 20240209
  Receipt Date: 20240312
  Transmission Date: 20240410
  Serious: Yes (Hospitalization, Other)
  Sender: FDA-Public Use
  Company Number: AR-NOVOPROD-1169792

PATIENT
  Age: 70 Year
  Sex: Male

DRUGS (4)
  1. OZEMPIC [Suspect]
     Active Substance: SEMAGLUTIDE
     Dosage: 0.5 MG, QW
     Dates: end: 20240118
  2. OZEMPIC [Suspect]
     Active Substance: SEMAGLUTIDE
     Indication: Product used for unknown indication
     Dosage: 0.25 MG, QW
     Dates: start: 20231210
  3. NYSTATIN [Concomitant]
     Active Substance: NYSTATIN
     Indication: Overweight
  4. NYSTATIN [Concomitant]
     Active Substance: NYSTATIN
     Indication: Dyslipidaemia
     Dosage: UNK

REACTIONS (3)
  - Acute kidney injury [Unknown]
  - Tubulointerstitial nephritis [Unknown]
  - Diarrhoea [Unknown]
